FAERS Safety Report 8238758-6 (Version None)
Quarter: 2012Q1

REPORT INFORMATION
  Report Type: 
  Country: None (occurrence: None)
  Receive Date: 20120327
  Receipt Date: 20120319
  Transmission Date: 20120608
  Serious: Yes (Other)
  Sender: FDA-Public Use
  Company Number: FR-ASTRAZENECA-2011SE72525

PATIENT
  Age: 26866 Day
  Sex: Male

DRUGS (6)
  1. DIAMICRON [Concomitant]
  2. VANCOMYCIN [Suspect]
     Indication: MENINGITIS
     Route: 042
     Dates: start: 20110930, end: 20111002
  3. ATORVASTATIN [Concomitant]
  4. MEROPENEM [Suspect]
     Indication: MENINGITIS
     Route: 042
     Dates: start: 20110930, end: 20111002
  5. TRANXENE [Concomitant]
  6. ACETAMINOPHEN [Concomitant]

REACTIONS (2)
  - RENAL FAILURE ACUTE [None]
  - OVERDOSE [None]
